FAERS Safety Report 4782949-3 (Version None)
Quarter: 2005Q3

REPORT INFORMATION
  Report Type: 
  Country: None (occurrence: None)
  Receive Date: 20050914
  Receipt Date: 20050524
  Transmission Date: 20060218
  Serious: Yes (Hospitalization)
  Sender: FDA-Public Use
  Company Number: 163-20785-05050355

PATIENT
  Age: 82 Year
  Sex: Female

DRUGS (9)
  1. THALOMID [Suspect]
     Indication: ACUTE MYELOID LEUKAEMIA
     Dosage: 50 MG, QHS, ORAL
     Route: 048
     Dates: start: 20050510, end: 20050614
  2. VIDAZA [Suspect]
     Indication: ACUTE MYELOID LEUKAEMIA
     Dosage: QD, CYCLE 1, SUBCUTANEOUS; 100 MG, QD, CYCLE 2, SUBCUTANEOUS
     Route: 058
     Dates: start: 20050506, end: 20050510
  3. VIDAZA [Suspect]
     Indication: ACUTE MYELOID LEUKAEMIA
     Dosage: QD, CYCLE 1, SUBCUTANEOUS; 100 MG, QD, CYCLE 2, SUBCUTANEOUS
     Route: 058
     Dates: start: 20050606, end: 20050610
  4. LEVOTHYROXINE SODIUM [Concomitant]
  5. PROTONIX [Concomitant]
  6. ARICEPT [Concomitant]
  7. LEVAQUIN [Concomitant]
  8. MULTIVITAMIN [Concomitant]
  9. TEMAZEPAM [Concomitant]

REACTIONS (9)
  - ABDOMINAL PAIN [None]
  - ANAEMIA [None]
  - CHILLS [None]
  - DRY EYE [None]
  - FATIGUE [None]
  - FEBRILE NEUTROPENIA [None]
  - OEDEMA PERIPHERAL [None]
  - THROMBOCYTOPENIA [None]
  - TREMOR [None]
